FAERS Safety Report 22119177 (Version 1)
Quarter: 2023Q1

REPORT INFORMATION
  Report Type: Spontaneous
  Country: US (occurrence: None)
  Receive Date: 20230321
  Receipt Date: 20230321
  Transmission Date: 20230418
  Serious: Yes (Other)
  Sender: FDA-Public Use
  Company Number: 2023A064490

PATIENT
  Age: 69 Year
  Sex: Male
  Weight: 86.2 kg

DRUGS (1)
  1. LOKELMA [Suspect]
     Active Substance: SODIUM ZIRCONIUM CYCLOSILICATE
     Indication: Blood potassium increased
     Route: 048
     Dates: start: 202302

REACTIONS (9)
  - Renal failure [Unknown]
  - Blood phosphorus increased [Unknown]
  - Blood sodium increased [Unknown]
  - Fall [Unknown]
  - Cognitive disorder [Unknown]
  - Confusional state [Unknown]
  - Hallucination [Unknown]
  - Depression [Unknown]
  - Product prescribing error [Unknown]

NARRATIVE: CASE EVENT DATE: 20230101
